FAERS Safety Report 5781128-0 (Version None)
Quarter: 2008Q2

REPORT INFORMATION
  Report Type: 
  Country: None (occurrence: None)
  Receive Date: 20080618
  Receipt Date: 20080606
  Transmission Date: 20081010
  Serious: Yes (Death)
  Sender: FDA-Public Use
  Company Number: 2008AL006531

PATIENT
  Age: 49 Year
  Sex: Female

DRUGS (1)
  1. PHENTERMINE HCL [Suspect]
     Indication: WEIGHT CONTROL
     Dosage: 37.5 MG;  PO
     Route: 048
     Dates: start: 20051001, end: 20060101

REACTIONS (4)
  - CARDIAC DEATH [None]
  - CARDIO-RESPIRATORY ARREST [None]
  - SUDDEN DEATH [None]
  - VENTRICULAR TACHYCARDIA [None]
